FAERS Safety Report 15878380 (Version 2)
Quarter: 2019Q1

REPORT INFORMATION
  Report Type: Report from Study
  Country: US (occurrence: US)
  Receive Date: 20190128
  Receipt Date: 20190204
  Transmission Date: 20190417
  Serious: No
  Sender: FDA-Public Use
  Company Number: PHEH2019US003661

PATIENT
  Sex: Male

DRUGS (3)
  1. ENTRESTO [Suspect]
     Active Substance: SACUBITRIL\VALSARTAN
     Indication: CARDIAC FAILURE CONGESTIVE
     Dosage: 1 DF (24 MG SACUBITRIL/ 25 MG VALSARTAN), UNK
     Route: 065
  2. ENTRESTO [Suspect]
     Active Substance: SACUBITRIL\VALSARTAN
     Dosage: 1 DF (97 MG SACUBITRIL/ 103 MG VALSARTAN), BID
     Route: 065
  3. ENTRESTO [Suspect]
     Active Substance: SACUBITRIL\VALSARTAN
     Dosage: 1 DF( 49 MG SACUBITRIL/ 51 MG VALSARTAN), BID
     Route: 065

REACTIONS (2)
  - Blood pressure increased [Recovering/Resolving]
  - Drug ineffective [Unknown]
